FAERS Safety Report 6428884-6 (Version None)
Quarter: 2009Q4

REPORT INFORMATION
  Report Type: 
  Country: None (occurrence: None)
  Receive Date: 20091104
  Receipt Date: 20091104
  Transmission Date: 20100525
  Serious: Yes (Death)
  Sender: FDA-Public Use
  Company Number: None

PATIENT
  Age: 89 Year
  Sex: Female
  Weight: 65.7716 kg

DRUGS (10)
  1. LUCENTIS [Suspect]
     Indication: CHOROIDAL NEOVASCULARISATION
     Dosage: 1.0 MG INTRAVITREAL INJ
     Route: 011
     Dates: start: 20090602
  2. LUCENTIS [Suspect]
     Indication: CHOROIDAL NEOVASCULARISATION
     Dosage: 1.0 MG INTRAVITREAL INJ
     Dates: start: 20090731
  3. REMERON [Concomitant]
  4. METORPOLOL [Concomitant]
  5. COD LIVER OIL [Concomitant]
  6. XANAX [Concomitant]
  7. LACTULOSE [Concomitant]
  8. COLACE [Concomitant]
  9. ALBUTEROL [Concomitant]
  10. THEOPHYLLINE [Concomitant]

REACTIONS (4)
  - BRONCHITIS [None]
  - MENTAL STATUS CHANGES [None]
  - RESPIRATORY FAILURE [None]
  - URINARY TRACT INFECTION [None]
